FAERS Safety Report 6302905-3 (Version None)
Quarter: 2009Q3

REPORT INFORMATION
  Report Type: 
  Country: None (occurrence: None)
  Receive Date: 20090810
  Receipt Date: 20090731
  Transmission Date: 20100115
  Serious: Yes (Hospitalization, Other)
  Sender: FDA-Public Use
  Company Number: US-ELI_LILLY_AND_COMPANY-US200908001564

PATIENT
  Sex: Female
  Weight: 95.238 kg

DRUGS (8)
  1. BYETTA [Suspect]
     Indication: TYPE 2 DIABETES MELLITUS
     Dosage: 5 UG, 2/D
     Route: 058
     Dates: start: 20070101, end: 20070101
  2. BYETTA [Suspect]
     Dosage: 10 UG, 2/D
     Route: 058
     Dates: start: 20070101, end: 20090701
  3. BYETTA [Suspect]
     Dosage: 10 UG, 2/D
     Route: 058
     Dates: start: 20070101, end: 20090701
  4. GLYBURIDE [Concomitant]
     Dosage: 4 MG, 2/D
     Route: 048
     Dates: end: 20090701
  5. GLYBURIDE [Concomitant]
     Dosage: 2 MG, 2/D
     Route: 048
     Dates: start: 20090701, end: 20090701
  6. LANTUS [Concomitant]
     Dosage: 8 U, EACH EVENING
     Dates: end: 20090701
  7. LANTUS [Concomitant]
     Dosage: 5 U, EACH EVENING
     Dates: start: 20090701, end: 20090701
  8. METFORMIN HCL [Concomitant]
     Dates: end: 20090301

REACTIONS (6)
  - BLOOD GLUCOSE DECREASED [None]
  - CARDIAC VALVE DISEASE [None]
  - NAUSEA [None]
  - OFF LABEL USE [None]
  - PNEUMONIA [None]
  - VOMITING [None]
